FAERS Safety Report 4838055-2 (Version None)
Quarter: 2005Q4

REPORT INFORMATION
  Report Type: 
  Country: None (occurrence: None)
  Receive Date: 20051128
  Receipt Date: 20051117
  Transmission Date: 20060501
  Serious: Yes (Hospitalization)
  Sender: FDA-Public Use
  Company Number: US-JNJFOC-20051104901

PATIENT
  Age: 85 Year
  Sex: Female

DRUGS (2)
  1. RAZADYNE ER [Suspect]
     Dosage: RESTARTED AFTER DISCHARGE
     Route: 048
  2. RAZADYNE ER [Suspect]
     Indication: DRUG USE FOR UNKNOWN INDICATION
     Route: 048

REACTIONS (2)
  - PANCREATITIS [None]
  - VOMITING [None]
